FAERS Safety Report 16525820 (Version 1)
Quarter: 2019Q3

REPORT INFORMATION
  Report Type: Spontaneous
  Country: DE (occurrence: DE)
  Receive Date: 20190703
  Receipt Date: 20190703
  Transmission Date: 20191004
  Serious: Yes (Other)
  Sender: FDA-Public Use
  Company Number: DE-ABBVIE-19K-062-2836825-00

PATIENT
  Age: 78 Year
  Sex: Female

DRUGS (7)
  1. PRAMIPEXOLE. [Suspect]
     Active Substance: PRAMIPEXOLE
     Route: 065
  2. PRAMIPEXOLE. [Suspect]
     Active Substance: PRAMIPEXOLE
     Indication: PARKINSON^S DISEASE
     Dosage: MODIFIED-RELEASE
     Route: 065
  3. PRAMIPEXOLE. [Suspect]
     Active Substance: PRAMIPEXOLE
     Dosage: MODIFIED-RELEASE
     Route: 065
  4. LEVODOPA [Suspect]
     Active Substance: LEVODOPA
     Indication: PARKINSON^S DISEASE
     Dosage: MODIFIED RELEASE, AT NIGHT
     Route: 065
  5. LEVODOPA/CARBIDOPA [Suspect]
     Active Substance: CARBIDOPA\LEVODOPA
     Indication: PARKINSON^S DISEASE
     Dosage: CARBIDOPA 12.5 MILLIGRAM + LEVODOPA 50 MILLIGRAM
     Route: 065
  6. BENSERAZIDE W/LEVODOPA [Suspect]
     Active Substance: BENSERAZIDE\LEVODOPA
     Indication: PARKINSON^S DISEASE
     Dosage: BENSERAZIDE 25 MILLIGRAM + LEVODOPA 100 MILLIGRAM
     Route: 065
  7. ENTACAPONE. [Suspect]
     Active Substance: ENTACAPONE
     Indication: PARKINSON^S DISEASE
     Route: 065

REACTIONS (7)
  - Pleurothotonus [Unknown]
  - Impulse-control disorder [Unknown]
  - Dyskinesia [Unknown]
  - Camptocormia [Unknown]
  - On and off phenomenon [Recovered/Resolved]
  - Stereotypy [Unknown]
  - Fatigue [Unknown]
